FAERS Safety Report 19267978 (Version 2)
Quarter: 2021Q2

REPORT INFORMATION
  Report Type: Other
  Country: US (occurrence: US)
  Receive Date: 20210517
  Receipt Date: 20210519
  Transmission Date: 20210717
  Serious: Yes (Hospitalization)
  Sender: FDA-Public Use
  Company Number: US-B.BRAUN MEDICAL INC.-2110624

PATIENT
  Age: 33 Year
  Sex: Female

DRUGS (6)
  1. LACTATED RINGERS SOLUTION [Concomitant]
     Active Substance: CALCIUM CHLORIDE\POTASSIUM CHLORIDE\SODIUM CHLORIDE\SODIUM LACTATE
     Route: 042
  2. SEVOFLURANE. [Concomitant]
     Active Substance: SEVOFLURANE
  3. ROCURONIUM [Concomitant]
     Active Substance: ROCURONIUM BROMIDE
  4. PHENYLEPHRINE [Concomitant]
     Active Substance: PHENYLEPHRINE HYDROCHLORIDE
  5. SUGAMMADEX [Concomitant]
     Active Substance: SUGAMMADEX
  6. MAGNESIUM SULFATE IN DEXTROSE [Suspect]
     Active Substance: MAGNESIUM SULFATE
     Indication: TOCOLYSIS

REACTIONS (1)
  - Drug ineffective [None]
